FAERS Safety Report 13855240 (Version 1)
Quarter: 2017Q3

REPORT INFORMATION
  Report Type: Spontaneous
  Country: DE (occurrence: DE)
  Receive Date: 20170810
  Receipt Date: 20170810
  Transmission Date: 20171127
  Serious: Yes (Death, Hospitalization, Other)
  Sender: FDA-Public Use
  Company Number: DE-IMPAX LABORATORIES, INC-2017-IPXL-02381

PATIENT
  Age: 64 Year
  Sex: Female

DRUGS (7)
  1. CARBIDOPA-LEVODOPA ER [Suspect]
     Active Substance: CARBIDOPA\LEVODOPA
     Indication: PARKINSON^S DISEASE
     Dosage: LEVODOPA DAILY DOSE (LDD) OF 1,450 MG
     Route: 065
  2. ENTACAPONE. [Suspect]
     Active Substance: ENTACAPONE
     Indication: PARKINSON^S DISEASE
     Dosage: UNK
     Route: 065
  3. APOMORPHINE [Suspect]
     Active Substance: APOMORPHINE
     Indication: PARKINSON^S DISEASE
     Dosage: UNK, PRN
     Route: 050
  4. APOMORPHINE [Suspect]
     Active Substance: APOMORPHINE
     Dosage: UNK, PRN, SUBCUTANEOUS INFUSION
     Route: 058
  5. CARBIDOPA-LEVODOPA ER [Suspect]
     Active Substance: CARBIDOPA\LEVODOPA
     Dosage: LEVODOPA EQUIVALENT DAILY DOSE (LEDD) OF 2,990 MG
     Route: 065
  6. CARBIDOPA-LEVODOPA ER [Suspect]
     Active Substance: CARBIDOPA\LEVODOPA
     Dosage: 16 HR LCIG MONO-THERAPY WITH AN LDD OF 3,860 MG
     Route: 065
  7. ROTIGOTINE [Suspect]
     Active Substance: ROTIGOTINE
     Indication: PARKINSON^S DISEASE
     Dosage: UNK
     Route: 065

REACTIONS (7)
  - Vitamin B6 decreased [Unknown]
  - Dyskinesia [Recovering/Resolving]
  - Acute motor-sensory axonal neuropathy [Unknown]
  - Cerebral infarction [Fatal]
  - Vitamin B12 decreased [Unknown]
  - Blood folate decreased [Unknown]
  - Hyperhomocysteinaemia [Unknown]
